FAERS Safety Report 8819553 (Version 1)
Quarter: 2012Q4

REPORT INFORMATION
  Report Type: 
  Country: PT (occurrence: PT)
  Receive Date: 20120930
  Receipt Date: 20120930
  Transmission Date: 20130627
  Serious: Yes (Other)
  Sender: FDA-Public Use
  Company Number: PT-009507513-1209PRT011763

PATIENT
  Age: 35 Year
  Sex: Female

DRUGS (2)
  1. ZOELY [Suspect]
     Indication: CONTRACEPTION
     Dosage: UNK
     Dates: start: 201204, end: 201207
  2. YAZ [Concomitant]
     Indication: CONTRACEPTION

REACTIONS (4)
  - Oedema peripheral [Recovered/Resolved]
  - Weight increased [Recovering/Resolving]
  - Increased appetite [Recovered/Resolved]
  - Generalised oedema [Recovered/Resolved]
